FAERS Safety Report 22351568 (Version 1)
Quarter: 2023Q2

REPORT INFORMATION
  Report Type: Spontaneous
  Country: AE (occurrence: AE)
  Receive Date: 20230522
  Receipt Date: 20230522
  Transmission Date: 20230722
  Serious: Yes (Death, Hospitalization)
  Sender: FDA-Public Use
  Company Number: AE-PFIZER INC-PV202200123147

PATIENT
  Age: 68 Year
  Sex: Female

DRUGS (1)
  1. IBRANCE [Suspect]
     Active Substance: PALBOCICLIB
     Indication: Breast cancer female
     Dosage: 125 MG, DAILY (OD)
     Route: 048
     Dates: start: 20221230, end: 20230102

REACTIONS (2)
  - Liver disorder [Fatal]
  - Discomfort [Fatal]

NARRATIVE: CASE EVENT DATE: 20230102
